FAERS Safety Report 8362934-5 (Version None)
Quarter: 2012Q1

REPORT INFORMATION
  Report Type: 
  Country: None (occurrence: None)
  Receive Date: 20120323
  Receipt Date: 20110224
  Transmission Date: 20120608
  Serious: Yes (Hospitalization)
  Sender: FDA-Public Use
  Company Number: 163-21880-11023207

PATIENT
  Age: 88 Year
  Sex: Female
  Weight: 57.6068 kg

DRUGS (1)
  1. REVLIMID [Suspect]
     Indication: 5Q MINUS SYNDROME
     Dosage: 5 MG, QOD, PO
     Route: 048
     Dates: start: 20100816

REACTIONS (1)
  - PNEUMONIA [None]
